FAERS Safety Report 8802655 (Version 1)
Quarter: 2012Q4

REPORT INFORMATION
  Report Type: 
  Country: US (occurrence: US)
  Receive Date: 20120921
  Receipt Date: 20120921
  Transmission Date: 20130627
  Serious: No
  Sender: FDA-Public Use
  Company Number: US-PFIZER INC-2012232834

PATIENT
  Age: 62 Year
  Sex: Female
  Weight: 81.63 kg

DRUGS (6)
  1. ADVIL PM [Suspect]
     Indication: NECK PAIN
     Dosage: 400 mg, took it once
     Dates: start: 201209, end: 201209
  2. ADVIL [Concomitant]
     Indication: NECK PAIN
     Dosage: 200 mg, UNK
  3. AMLODIPINE [Concomitant]
     Indication: HYPERTENSION
     Dosage: 5 mg, daily
  4. LOSARTAN [Concomitant]
     Indication: HYPERTENSION
     Dosage: 100 mg, daily
  5. PRAVASTATIN [Concomitant]
     Indication: BLOOD CHOLESTEROL ABNORMAL
     Dosage: 20 mg, daily
  6. VITAMIN D [Concomitant]
     Dosage: UNK

REACTIONS (2)
  - Drug ineffective [Unknown]
  - Middle insomnia [Unknown]
